FAERS Safety Report 5823024-6 (Version None)
Quarter: 2008Q3

REPORT INFORMATION
  Report Type: 
  Country: None (occurrence: None)
  Receive Date: 20080725
  Receipt Date: 20080718
  Transmission Date: 20090109
  Serious: Yes (Hospitalization, Disabling)
  Sender: FDA-Public Use
  Company Number: GB-ROCHE-576633

PATIENT
  Age: 34 Year
  Sex: Female
  Weight: 98 kg

DRUGS (2)
  1. PEGASYS [Suspect]
     Indication: HEPATITIS C
     Route: 065
     Dates: start: 20071009, end: 20080116
  2. TRIBAVIRIN [Suspect]
     Indication: HEPATITIS C
     Route: 065
     Dates: start: 20071009, end: 20080117

REACTIONS (2)
  - ANAEMIA [None]
  - RENAL FAILURE ACUTE [None]
